FAERS Safety Report 6545710-5 (Version None)
Quarter: 2010Q1

REPORT INFORMATION
  Report Type: 
  Country: None (occurrence: None)
  Receive Date: 20100121
  Receipt Date: 20100118
  Transmission Date: 20100710
  Serious: Yes (Death, Hospitalization)
  Sender: FDA-Public Use
  Company Number: PHHY2010IN02511

PATIENT
  Age: 70 Year
  Sex: Female

DRUGS (3)
  1. AFINITOR [Suspect]
     Indication: METASTATIC RENAL CELL CARCINOMA
     Dosage: 10 MG DAILY
  2. OHA [Concomitant]
  3. AMLODIPINE [Concomitant]
     Dosage: 5MG DAILY

REACTIONS (4)
  - DIABETIC KETOACIDOSIS [None]
  - MUCOSAL INFLAMMATION [None]
  - SEPSIS [None]
  - TOOTH INFECTION [None]
